FAERS Safety Report 4538058-1 (Version None)
Quarter: 2004Q4

REPORT INFORMATION
  Report Type: 
  Country: None (occurrence: None)
  Receive Date: 20041223
  Receipt Date: 20041223
  Transmission Date: 20050328
  Serious: Yes (Hospitalization)
  Sender: FDA-Public Use
  Company Number: None

PATIENT
  Sex: Male

DRUGS (6)
  1. SINEMET [Suspect]
     Indication: PARKINSON'S DISEASE
     Dosage: TAKE 1 TABLET  THREE TIMES A DAY  SEVERAL YEARS
  2. HUMALOG MIX 75/25 [Concomitant]
  3. PROVIGIL [Concomitant]
  4. LITHIUM CARBONATE [Concomitant]
  5. IMIPRAM TAB [Concomitant]
  6. COENZYME Q10 [Concomitant]

REACTIONS (2)
  - PARKINSONISM [None]
  - PHARMACEUTICAL PRODUCT COMPLAINT [None]
